FAERS Safety Report 26123882 (Version 1)
Quarter: 2025Q4

REPORT INFORMATION
  Report Type: Spontaneous
  Country: EU (occurrence: EU)
  Receive Date: 20251205
  Receipt Date: 20251205
  Transmission Date: 20260117
  Serious: Yes (Life-Threatening, Hospitalization)
  Sender: CSL BEHRING
  Company Number: EU-PEI-202500024573

PATIENT
  Age: 56 Year
  Sex: Male
  Weight: 91 kg

DRUGS (4)
  1. PRIVIGEN [Suspect]
     Active Substance: HUMAN IMMUNOGLOBULIN G
     Indication: Multifocal motor neuropathy
     Dosage: 50 G (5X 100ML)
     Route: 065
     Dates: start: 20250915, end: 20250915
  2. PRIVIGEN [Suspect]
     Active Substance: HUMAN IMMUNOGLOBULIN G
     Dosage: 50 G (5X 100ML)
     Route: 065
     Dates: start: 20250916, end: 20250916
  3. PRIVIGEN [Suspect]
     Active Substance: HUMAN IMMUNOGLOBULIN G
     Dosage: 40 G (5X100 ML)
     Route: 065
     Dates: start: 20250917, end: 20250917
  4. PRIVIGEN [Suspect]
     Active Substance: HUMAN IMMUNOGLOBULIN G
     Dosage: 40 G (5X100 ML)
     Route: 065
     Dates: start: 20250918, end: 20250918

REACTIONS (5)
  - Vasculitis [Unknown]
  - Rash [Unknown]
  - Oedema peripheral [Unknown]
  - Renal failure [Unknown]
  - Pulmonary embolism [Unknown]
